FAERS Safety Report 23442264 (Version 1)
Quarter: 2024Q1

REPORT INFORMATION
  Report Type: Report from Study
  Country: US (occurrence: None)
  Receive Date: 20240125
  Receipt Date: 20240125
  Transmission Date: 20240410
  Serious: Yes (Other)
  Sender: FDA-Public Use
  Company Number: 2024A013755

PATIENT
  Sex: Female

DRUGS (2)
  1. LYNPARZA [Suspect]
     Active Substance: OLAPARIB
     Indication: Breast cancer female
     Route: 048
  2. LYNPARZA [Suspect]
     Active Substance: OLAPARIB
     Indication: Breast cancer female
     Route: 048

REACTIONS (11)
  - Splenic artery aneurysm [Unknown]
  - Tumour marker increased [Unknown]
  - Cardiac flutter [Unknown]
  - Cerebral disorder [Unknown]
  - Pancreatic disorder [Unknown]
  - Bradyphrenia [Unknown]
  - Faeces hard [Unknown]
  - Asthenia [Unknown]
  - Pain [Unknown]
  - Stress [Unknown]
  - Palpitations [Unknown]
